FAERS Safety Report 22646307 (Version 1)
Quarter: 2023Q2

REPORT INFORMATION
  Report Type: Spontaneous
  Country: US (occurrence: None)
  Receive Date: 20230626
  Receipt Date: 20230626
  Transmission Date: 20230722
  Serious: Yes (Disabling)
  Sender: FDA-Public Use
  Company Number: None

PATIENT
  Age: 61 Year
  Sex: Female
  Weight: 89.1 kg

DRUGS (13)
  1. DEXTROAMPHET SACCHARAT, AMPHET ASPARTATE, DEXTROAMPHET SULFATE AND AMP [Suspect]
     Active Substance: AMPHETAMINE ASPARTATE\AMPHETAMINE ASPARTATE MONOHYDRATE\AMPHETAMINE SULFATE\DEXTROAMPHETAMINE SACCHA
     Indication: Cognitive disorder
     Dosage: OTHER QUANTITY : 1 TABLET(S);?
     Route: 048
  2. fomatadine [Concomitant]
  3. TRAZODONE [Concomitant]
     Active Substance: TRAZODONE HYDROCHLORIDE
  4. DEXILANT [Concomitant]
     Active Substance: DEXLANSOPRAZOLE
  5. levotyroxine [Concomitant]
  6. ARMODAFINIL [Concomitant]
     Active Substance: ARMODAFINIL
  7. XANAX [Concomitant]
     Active Substance: ALPRAZOLAM
  8. BIOTIN [Concomitant]
     Active Substance: BIOTIN
  9. VITAMIN D3 [Concomitant]
     Active Substance: CHOLECALCIFEROL
  10. VITAMIN B COMPLEX [Concomitant]
     Active Substance: CYANOCOBALAMIN\DEXPANTHENOL\NIACINAMIDE\PYRIDOXINE HYDROCHLORIDE\RIBOFLAVIN 5^-PHOSPHATE SODIUM\THIA
  11. CRANBERRY [Concomitant]
     Active Substance: CRANBERRY
  12. VITAMINS [Concomitant]
     Active Substance: VITAMINS
  13. FIBERCON [Concomitant]
     Active Substance: CALCIUM POLYCARBOPHIL

REACTIONS (12)
  - Pain [None]
  - Malaise [None]
  - Feeling drunk [None]
  - Suicidal ideation [None]
  - Intentional self-injury [None]
  - Illness [None]
  - Nausea [None]
  - Vomiting [None]
  - Diarrhoea [None]
  - Migraine [None]
  - Nerve compression [None]
  - Mental disorder [None]

NARRATIVE: CASE EVENT DATE: 20230617
